FAERS Safety Report 11742167 (Version 1)
Quarter: 2015Q4

REPORT INFORMATION
  Report Type: Spontaneous
  Country: US (occurrence: US)
  Receive Date: 20151116
  Receipt Date: 20151116
  Transmission Date: 20160304
  Serious: No
  Sender: FDA-Public Use
  Company Number: US-ACTELION PHARMACEUTICALS US, INC.-A-NJ2014-105790

PATIENT
  Age: 66 Year
  Sex: Male

DRUGS (3)
  1. VELETRI [Suspect]
     Active Substance: EPOPROSTENOL
     Indication: COR PULMONALE CHRONIC
     Dosage: 25.5 NG/KG, PER MIN
     Route: 041
     Dates: start: 20140228
  2. VELETRI [Suspect]
     Active Substance: EPOPROSTENOL
     Dosage: 25 NG/KG, PER MIN
     Route: 041
  3. TRACLEER [Suspect]
     Active Substance: BOSENTAN
     Indication: COR PULMONALE CHRONIC
     Route: 048

REACTIONS (3)
  - Dyspnoea [Unknown]
  - No therapeutic response [Unknown]
  - Chemical injury [Unknown]
